FAERS Safety Report 17830978 (Version 1)
Quarter: 2020Q2

REPORT INFORMATION
  Report Type: Spontaneous
  Country: ES (occurrence: ES)
  Receive Date: 20200527
  Receipt Date: 20200527
  Transmission Date: 20200714
  Serious: Yes (Hospitalization)
  Sender: FDA-Public Use
  Company Number: ES-JNJFOC-20200524813

PATIENT
  Age: 91 Year
  Sex: Female

DRUGS (2)
  1. SINTROM [Concomitant]
     Active Substance: ACENOCOUMAROL
  2. RIVAROXABAN [Suspect]
     Active Substance: RIVAROXABAN
     Indication: ATRIAL FIBRILLATION
     Dosage: 15 MG, QD
     Route: 048
     Dates: start: 2018

REACTIONS (1)
  - Ischaemic stroke [Unknown]
